FAERS Safety Report 6082505-3 (Version None)
Quarter: 2009Q1

REPORT INFORMATION
  Report Type: 
  Country: None (occurrence: None)
  Receive Date: 20090204
  Receipt Date: 20080616
  Transmission Date: 20090719
  Serious: Yes (Hospitalization)
  Sender: FDA-Public Use
  Company Number: 276438

PATIENT
  Age: 24 Year
  Sex: Male

DRUGS (5)
  1. NOVOLOG [Suspect]
     Indication: TYPE 1 DIABETES MELLITUS
     Dosage: SUBCUTANEOUS
     Route: 058
  2. LEVEMIR [Suspect]
     Indication: TYPE 1 DIABETES MELLITUS
     Dosage: SLIDING SCALE, SUBCUTANEOUS
     Route: 058
  3. LANTUS [Concomitant]
  4. COUMADIN [Concomitant]
  5. NEURONTIN [Concomitant]

REACTIONS (3)
  - DIABETIC KETOACIDOSIS [None]
  - MUSCLE SPASMS [None]
  - WEIGHT DECREASED [None]
